FAERS Safety Report 15209453 (Version 2)
Quarter: 2018Q3

REPORT INFORMATION
  Report Type: Spontaneous
  Country: US (occurrence: US)
  Receive Date: 20180727
  Receipt Date: 20180824
  Transmission Date: 20181010
  Serious: Yes (Hospitalization, Disabling)
  Sender: FDA-Public Use
  Company Number: US-OTSUKA-2018_026671

PATIENT
  Sex: Male

DRUGS (2)
  1. ABILIFY [Suspect]
     Active Substance: ARIPIPRAZOLE
     Indication: MAJOR DEPRESSION
  2. ABILIFY [Suspect]
     Active Substance: ARIPIPRAZOLE
     Indication: BIPOLAR DISORDER
     Dosage: 20 MG, QD
     Route: 065
     Dates: start: 201304, end: 201603

REACTIONS (15)
  - Economic problem [Unknown]
  - Emotional distress [Unknown]
  - Incorrect dose administered [Unknown]
  - Disability [Unknown]
  - Compulsive sexual behaviour [Recovered/Resolved]
  - Compulsive shopping [Recovered/Resolved]
  - Anhedonia [Unknown]
  - Mental impairment [Unknown]
  - Obsessive-compulsive disorder [Unknown]
  - Social problem [Unknown]
  - Substance abuse [Unknown]
  - Injury [Unknown]
  - Alcohol abuse [Unknown]
  - Mental disorder [Unknown]
  - Gambling disorder [Recovered/Resolved]

NARRATIVE: CASE EVENT DATE: 201304
